FAERS Safety Report 6179296-4 (Version None)
Quarter: 2009Q2

REPORT INFORMATION
  Report Type: 
  Country: None (occurrence: None)
  Receive Date: 20090430
  Receipt Date: 20090420
  Transmission Date: 20091009
  Serious: Yes (Other)
  Sender: FDA-Public Use
  Company Number: 192424USA

PATIENT
  Age: 26 Year
  Sex: Female

DRUGS (4)
  1. CLARAVIS [Suspect]
     Dosage: 60 MG (30 MG, 2 IN 1 D), ORAL; 60MG (30MG, 2 IN 1 D), ORAL; 30 MG (30 MG, 1 IN 1 D), ORAL
     Route: 048
     Dates: start: 20080623, end: 20081111
  2. CLARAVIS [Suspect]
     Dosage: 60 MG (30 MG, 2 IN 1 D), ORAL; 60MG (30MG, 2 IN 1 D), ORAL; 30 MG (30 MG, 1 IN 1 D), ORAL
     Route: 048
     Dates: start: 20090105, end: 20090302
  3. CLARAVIS [Suspect]
     Dosage: 60 MG (30 MG, 2 IN 1 D), ORAL; 60MG (30MG, 2 IN 1 D), ORAL; 30 MG (30 MG, 1 IN 1 D), ORAL
     Route: 048
     Dates: start: 20090401, end: 20090401
  4. ORAL CONTRACPTIVE [Concomitant]

REACTIONS (6)
  - ASPARTATE AMINOTRANSFERASE INCREASED [None]
  - DRUG EXPOSURE DURING PREGNANCY [None]
  - MALAISE [None]
  - TREATMENT NONCOMPLIANCE [None]
  - UNINTENDED PREGNANCY [None]
  - WHITE BLOOD CELL COUNT INCREASED [None]
